FAERS Safety Report 6857297-8 (Version None)
Quarter: 2010Q3

REPORT INFORMATION
  Report Type: 
  Country: None (occurrence: None)
  Receive Date: 20100719
  Receipt Date: 20100707
  Transmission Date: 20110219
  Serious: Yes (Other)
  Sender: FDA-Public Use
  Company Number: GB-PFIZER INC-2010085676

PATIENT
  Age: 27 Year
  Sex: Male

DRUGS (2)
  1. LYRICA [Suspect]
     Indication: EPILEPSY
     Dosage: 75 MG, UNK
  2. LYRICA [Suspect]
     Indication: NERVOUS SYSTEM DISORDER

REACTIONS (8)
  - DRY SKIN [None]
  - DYSARTHRIA [None]
  - ENCEPHALOCELE [None]
  - INCREASED APPETITE [None]
  - INSOMNIA [None]
  - TREMOR [None]
  - VISUAL IMPAIRMENT [None]
  - WEIGHT INCREASED [None]
